FAERS Safety Report 8946793 (Version 1)
Quarter: 2012Q4

REPORT INFORMATION
  Report Type: 
  Country: US (occurrence: US)
  Receive Date: 20121204
  Receipt Date: 20121204
  Transmission Date: 20130627
  Serious: No
  Sender: FDA-Public Use
  Company Number: US-AMGEN-USASP2012076489

PATIENT
  Sex: Female

DRUGS (2)
  1. ENBREL [Suspect]
     Indication: RHEUMATOID ARTHRITIS
     Dosage: 50 mg, qwk
     Route: 065
     Dates: start: 20040101
  2. SULFASALAZINE [Concomitant]
     Dosage: 500 mg, 2 tabs daily
     Route: 048

REACTIONS (1)
  - Rheumatoid arthritis [Recovered/Resolved]
